FAERS Safety Report 24976029 (Version 2)
Quarter: 2025Q4

REPORT INFORMATION
  Report Type: Spontaneous
  Country: US (occurrence: US)
  Receive Date: 20250217
  Receipt Date: 20251125
  Transmission Date: 20260118
  Serious: Yes (Other)
  Sender: COOPERSURGICAL
  Company Number: US-COOPERSURGICAL, INC.-2025CPS000926

PATIENT
  Age: 21 Year
  Sex: Female
  Weight: 70.295 kg

DRUGS (1)
  1. PARAGARD T 380A [Suspect]
     Active Substance: COPPER
     Indication: Contraception
     Dosage: UNK
     Route: 015
     Dates: start: 20150301

REACTIONS (10)
  - Reproductive complication associated with device [Not Recovered/Not Resolved]
  - Device breakage [Unknown]
  - Hormone level abnormal [Not Recovered/Not Resolved]
  - Depression [Unknown]
  - Perineal pain [Recovering/Resolving]
  - Sexual dysfunction [Not Recovered/Not Resolved]
  - Emotional distress [Not Recovered/Not Resolved]
  - Device expulsion [Recovered/Resolved]
  - Menstrual disorder [Not Recovered/Not Resolved]
  - Pelvic pain [Recovering/Resolving]

NARRATIVE: CASE EVENT DATE: 20171016
